FAERS Safety Report 20695642 (Version 1)
Quarter: 2022Q2

REPORT INFORMATION
  Report Type: Other
  Country: DE (occurrence: DE)
  Receive Date: 20220411
  Receipt Date: 20220411
  Transmission Date: 20220720
  Serious: Yes (Death, Life-Threatening, Other)
  Sender: FDA-Public Use
  Company Number: DE-ASTELLAS-2022US013062

PATIENT
  Age: 46 Year
  Sex: Male

DRUGS (2)
  1. AMPHOTERICIN B [Suspect]
     Active Substance: AMPHOTERICIN B
     Indication: Meningitis cryptococcal
     Route: 042
  2. DOLOPHINE [Concomitant]
     Active Substance: METHADONE HYDROCHLORIDE
     Indication: Product used for unknown indication
     Dosage: UNK UNK, UNKNOWN FREQ.
     Route: 065

REACTIONS (1)
  - Anaphylactic reaction [Fatal]

NARRATIVE: CASE EVENT DATE: 20220323
